FAERS Safety Report 21398568 (Version 1)
Quarter: 2022Q3

REPORT INFORMATION
  Report Type: Spontaneous
  Country: GB (occurrence: GB)
  Receive Date: 20220930
  Receipt Date: 20220930
  Transmission Date: 20221027
  Serious: Yes (Life-Threatening, Hospitalization)
  Sender: FDA-Public Use
  Company Number: GB-MHRA-MED-202209280936497350-MSYHZ

PATIENT
  Sex: Female

DRUGS (1)
  1. QUTENZA [Suspect]
     Active Substance: CAPSAICIN
     Indication: Analgesic therapy
     Dosage: UNK
     Route: 065
     Dates: start: 20220923

REACTIONS (1)
  - Anaphylactic reaction [Recovered/Resolved]
